FAERS Safety Report 19933638 (Version 1)
Quarter: 2021Q4

REPORT INFORMATION
  Report Type: Spontaneous
  Country: US (occurrence: US)
  Receive Date: 20211006
  Receipt Date: 20211006
  Transmission Date: 20220303
  Serious: No
  Sender: FDA-Public Use
  Company Number: None

PATIENT
  Age: 79 Year
  Sex: Female

DRUGS (1)
  1. OPSUMIT [Suspect]
     Active Substance: MACITENTAN
     Indication: Pulmonary arterial hypertension
     Route: 048
     Dates: start: 20210607, end: 20211006

REACTIONS (5)
  - Pulmonary arterial pressure increased [None]
  - Right ventricular failure [None]
  - Anaemia [None]
  - Oedema [None]
  - Blood creatinine increased [None]

NARRATIVE: CASE EVENT DATE: 20211006
